APPROVED DRUG PRODUCT: TETRACYCLINE HYDROCHLORIDE
Active Ingredient: TETRACYCLINE HYDROCHLORIDE
Strength: 250MG
Dosage Form/Route: CAPSULE;ORAL
Application: A062752 | Product #001 | TE Code: AB
Applicant: CHARTWELL TETRA LLC
Approved: Aug 12, 1988 | RLD: No | RS: No | Type: RX